FAERS Safety Report 9287523 (Version 1)
Quarter: 2013Q2

REPORT INFORMATION
  Report Type: Spontaneous
  Country: PL (occurrence: PL)
  Receive Date: 20130514
  Receipt Date: 20130514
  Transmission Date: 20140414
  Serious: Yes (Life-Threatening, Hospitalization)
  Sender: FDA-Public Use
  Company Number: PL-PFIZER INC-2013144635

PATIENT
  Age: 32 Year
  Sex: Male

DRUGS (5)
  1. DOXORUBICIN HCL [Suspect]
     Indication: DIFFUSE LARGE B-CELL LYMPHOMA
     Dosage: 50 MG/M2, PER CYCLE, ON DAY 1, TYPICALLY ADMINISTERED 6-8 TIMES AT 21-DAY INTERVALS
     Dates: start: 200808
  2. RITUXIMAB [Suspect]
     Indication: DIFFUSE LARGE B-CELL LYMPHOMA
     Dosage: 375 MG/M2, PER CYCLE, ON DAY 1, TYPICALLY ADMINISTERED 6-8 TIMES AT 21-DAY INTERVALS
     Dates: start: 200808
  3. CYCLOPHOSPHAMIDE [Suspect]
     Indication: DIFFUSE LARGE B-CELL LYMPHOMA
     Dosage: 750 MG/M2, PER CYCLE, ON DAY 1, TYPICALLY ADMINISTERED 6-8 TIMES AT 21-DAY INTERVALS
     Dates: start: 200808
  4. VINCRISTINE [Suspect]
     Indication: DIFFUSE LARGE B-CELL LYMPHOMA
     Dosage: 1.4 MG/M2, (UP TO 2 MG) PER CYCLE, ON DAY 1, TYPICALLY ADMINISTERED 6-8 TIMES AT 21-DAY INTERVALS
     Dates: start: 200808
  5. PREDNISONE [Suspect]
     Indication: DIFFUSE LARGE B-CELL LYMPHOMA
     Dosage: 100 MG, ON DAYS 1-5, TYPICALLY ADMINISTERED 6-8 TIMES AT 21-DAY INTERVALS
     Dates: start: 200808

REACTIONS (1)
  - Small intestinal perforation [Recovered/Resolved]
